FAERS Safety Report 8908615 (Version 1)
Quarter: 2012Q4

REPORT INFORMATION
  Report Type: 
  Country: CH (occurrence: DE)
  Receive Date: 20121114
  Receipt Date: 20121114
  Transmission Date: 20130627
  Serious: Yes (Other)
  Sender: FDA-Public Use
  Company Number: DE-BAYER-2012-119413

PATIENT
  Weight: 85 kg

DRUGS (3)
  1. EXTAVIA [Suspect]
     Indication: MULTIPLE SCLEROSIS
     Dosage: 1 ml, QOD
     Route: 058
     Dates: start: 20120424
  2. METOPROLOL [Concomitant]
  3. METOPROLOL [Concomitant]
     Dosage: 46.5 mg, ONCE

REACTIONS (1)
  - Atrial flutter [Recovered/Resolved]
